FAERS Safety Report 9112719 (Version 2)
Quarter: 2013Q2

REPORT INFORMATION
  Report Type: Spontaneous
  Country: DE (occurrence: DE)
  Receive Date: 20130211
  Receipt Date: 20130419
  Transmission Date: 20140414
  Serious: Yes (Other)
  Sender: FDA-Public Use
  Company Number: DE-GALDERMA-DE13000421

PATIENT
  Sex: Male

DRUGS (4)
  1. ORAYCEA [Suspect]
     Indication: ROSACEA
     Route: 048
     Dates: start: 20130101
  2. GLIMEPIRIDE [Concomitant]
  3. BISOPROLOL [Concomitant]
  4. FINASTERIDE [Concomitant]

REACTIONS (2)
  - Recurrent cancer [Unknown]
  - Thrombocytopenia [Unknown]
